FAERS Safety Report 7598207-8 (Version None)
Quarter: 2011Q3

REPORT INFORMATION
  Report Type: 
  Country: None (occurrence: None)
  Receive Date: 20110708
  Receipt Date: 20110630
  Transmission Date: 20111222
  Serious: Yes (Death)
  Sender: FDA-Public Use
  Company Number: JP-GENZYME-CERZ-1001979

PATIENT
  Sex: Male
  Weight: 40 kg

DRUGS (5)
  1. CEREZYME [Suspect]
     Dosage: 55 U/KG, Q2W
     Route: 042
     Dates: start: 19940501, end: 20110224
  2. CEREZYME [Suspect]
     Indication: GAUCHER'S DISEASE
     Dosage: 60 U/KG, Q2W
     Route: 042
     Dates: start: 20110317, end: 20110318
  3. LAMOTRIGINE [Concomitant]
     Indication: EPILEPSY
     Dosage: UNK
     Route: 065
     Dates: start: 20100819, end: 20110320
  4. CLONAZEPAM [Concomitant]
     Indication: EPILEPSY
     Dosage: 0.5 MG, BID
     Route: 065
     Dates: start: 20101216, end: 20110320
  5. VALPROATE SODIUM [Concomitant]
     Indication: EPILEPSY
     Dosage: 400 MG, BID
     Route: 065
     Dates: start: 20090518, end: 20110310

REACTIONS (2)
  - EPILEPSY [None]
  - PLATELET COUNT DECREASED [None]
